FAERS Safety Report 18831551 (Version 1)
Quarter: 2021Q1

REPORT INFORMATION
  Report Type: Spontaneous
  Country: US (occurrence: US)
  Receive Date: 20210202
  Receipt Date: 20210202
  Transmission Date: 20210419
  Serious: Yes (Death)
  Sender: FDA-Public Use
  Company Number: None

PATIENT
  Age: 56 Year
  Sex: Female

DRUGS (1)
  1. AFINITOR [Suspect]
     Active Substance: EVEROLIMUS
     Indication: CHRONIC MYELOID LEUKAEMIA
     Route: 048
     Dates: start: 20210113

REACTIONS (1)
  - Hypophagia [None]

NARRATIVE: CASE EVENT DATE: 20210202
